FAERS Safety Report 10971531 (Version 1)
Quarter: 2015Q1

REPORT INFORMATION
  Report Type: Spontaneous
  Country: GB (occurrence: GB)
  Receive Date: 20150331
  Receipt Date: 20150331
  Transmission Date: 20150721
  Serious: Yes (Other)
  Sender: FDA-Public Use
  Company Number: GB-ACTAVISPR-2015-05665

PATIENT
  Age: 38 Year
  Sex: Male

DRUGS (1)
  1. ANTABUSE [Suspect]
     Active Substance: DISULFIRAM
     Indication: ALCOHOLISM
     Dosage: 200 MG, DAILY
     Route: 048
     Dates: start: 20141106, end: 20150219

REACTIONS (1)
  - Alanine aminotransferase increased [Recovered/Resolved]

NARRATIVE: CASE EVENT DATE: 20141106
